FAERS Safety Report 20131752 (Version 1)
Quarter: 2021Q4

REPORT INFORMATION
  Report Type: Spontaneous
  Country: CA (occurrence: CA)
  Receive Date: 20211130
  Receipt Date: 20211130
  Transmission Date: 20220303
  Serious: Yes (Other)
  Sender: FDA-Public Use
  Company Number: CA-JNJFOC-20211155501

PATIENT
  Age: 55 Year
  Sex: Male
  Weight: 67 kg

DRUGS (12)
  1. REMICADE [Suspect]
     Active Substance: INFLIXIMAB
     Indication: Crohn^s disease
     Route: 042
  2. ALPRAZOLAM [Concomitant]
     Active Substance: ALPRAZOLAM
  3. ATORVASTATIN [Concomitant]
     Active Substance: ATORVASTATIN
  4. CYCLOBENZAPRINE [Concomitant]
     Active Substance: CYCLOBENZAPRINE
  5. FLOVENT [Concomitant]
     Active Substance: FLUTICASONE PROPIONATE
  6. OLOPATADINE HYDROCHLORIDE [Concomitant]
     Active Substance: OLOPATADINE HYDROCHLORIDE
  7. OMEPRAZOLE [Concomitant]
     Active Substance: OMEPRAZOLE
  8. PAROXETINE HYDROCHLORIDE [Concomitant]
     Active Substance: PAROXETINE HYDROCHLORIDE
  9. PREDNISONE [Concomitant]
     Active Substance: PREDNISONE
  10. PREGABALIN [Concomitant]
     Active Substance: PREGABALIN
  11. VALACYCLOVIR [Concomitant]
     Active Substance: VALACYCLOVIR HYDROCHLORIDE
  12. VENTOLIN [Concomitant]
     Active Substance: ALBUTEROL SULFATE

REACTIONS (10)
  - Peripheral swelling [Unknown]
  - Productive cough [Unknown]
  - Pain in extremity [Unknown]
  - Blood pressure fluctuation [Unknown]
  - Diarrhoea [Unknown]
  - Fatigue [Unknown]
  - Influenza [Unknown]
  - Localised infection [Unknown]
  - Condition aggravated [Unknown]
  - Off label use [Unknown]
